FAERS Safety Report 22084070 (Version 1)
Quarter: 2023Q1

REPORT INFORMATION
  Report Type: Spontaneous
  Country: TW (occurrence: TW)
  Receive Date: 20230310
  Receipt Date: 20230310
  Transmission Date: 20230417
  Serious: Yes (Other)
  Sender: FDA-Public Use
  Company Number: TW-BAYER-2023A031112

PATIENT
  Age: 60 Year
  Sex: Male

DRUGS (2)
  1. NEXAVAR [Suspect]
     Active Substance: SORAFENIB
     Dosage: UNK
     Route: 048
     Dates: end: 202211
  2. STIVARGA [Suspect]
     Active Substance: REGORAFENIB
     Dosage: 4 DF, QD, CONTINUE 3 WEEKS AND STOP 1 WEEK
     Route: 048
     Dates: start: 202211, end: 202301

REACTIONS (2)
  - Malignant neoplasm progression [None]
  - Anaemia [None]

NARRATIVE: CASE EVENT DATE: 20221101
